FAERS Safety Report 15943791 (Version 1)
Quarter: 2019Q1

REPORT INFORMATION
  Report Type: Spontaneous
  Country: US (occurrence: US)
  Receive Date: 20190118
  Receipt Date: 20190118
  Transmission Date: 20190417
  Serious: No
  Sender: FDA-Public Use
  Company Number: None

PATIENT
  Age: 30 Year
  Sex: Female

DRUGS (1)
  1. TEMOZOLOMIDE 100MG CAP [Suspect]
     Active Substance: TEMOZOLOMIDE
     Dates: start: 20181019

REACTIONS (5)
  - Fatigue [None]
  - Vomiting [None]
  - Alopecia [None]
  - Nausea [None]
  - Hypertension [None]

NARRATIVE: CASE EVENT DATE: 20190104
